FAERS Safety Report 6679137-2 (Version None)
Quarter: 2010Q2

REPORT INFORMATION
  Report Type: 
  Country: None (occurrence: None)
  Receive Date: 20100402
  Receipt Date: 20091213
  Transmission Date: 20101027
  Serious: Yes (Hospitalization, Other)
  Sender: FDA-Public Use
  Company Number: 2009292688

PATIENT
  Sex: Female

DRUGS (2)
  1. ARGATROBAN [Suspect]
     Dosage: 1.8 MCG/KG/MIN, INTRAVENOUS;
     Route: 042
     Dates: start: 20091012, end: 20091029
  2. ARGATROBAN [Suspect]
     Dosage: 1.8 MCG/KG/MIN, INTRAVENOUS;
     Route: 042
     Dates: start: 20091030

REACTIONS (1)
  - INTERNATIONAL NORMALISED RATIO INCREASED [None]
